FAERS Safety Report 18067288 (Version 3)
Quarter: 2020Q3

REPORT INFORMATION
  Report Type: Spontaneous
  Country: US (occurrence: US)
  Receive Date: 20200724
  Receipt Date: 20200731
  Transmission Date: 20201103
  Serious: Yes (Other)
  Sender: FDA-Public Use
  Company Number: US-ASTRAZENECA-2020SE83322

PATIENT
  Age: 713 Month
  Sex: Female
  Weight: 117.9 kg

DRUGS (3)
  1. BYDUREON BCISE [Suspect]
     Active Substance: EXENATIDE
     Indication: TYPE 2 DIABETES MELLITUS
     Route: 058
  2. HUMALOG [Concomitant]
     Active Substance: INSULIN LISPRO
     Route: 058
  3. TOUJEO [Concomitant]
     Active Substance: INSULIN GLARGINE
     Indication: DIABETES MELLITUS
     Route: 058

REACTIONS (12)
  - Blood glucose increased [Unknown]
  - Stress [Unknown]
  - Arthropod bite [Not Recovered/Not Resolved]
  - Injection site pruritus [Recovered/Resolved]
  - Weight decreased [Unknown]
  - Glycosylated haemoglobin abnormal [Unknown]
  - Blood glucose abnormal [Unknown]
  - Device leakage [Unknown]
  - Coronary artery occlusion [Unknown]
  - Injection site bruising [Not Recovered/Not Resolved]
  - Lymphoedema [Unknown]
  - Pain [Unknown]

NARRATIVE: CASE EVENT DATE: 202001
